FAERS Safety Report 6089765-3 (Version None)
Quarter: 2009Q1

REPORT INFORMATION
  Report Type: 
  Country: None (occurrence: None)
  Receive Date: 20090220
  Receipt Date: 20090204
  Transmission Date: 20090719
  Serious: No
  Sender: FDA-Public Use
  Company Number: US024420

PATIENT
  Sex: Male

DRUGS (8)
  1. FENTORA [Suspect]
     Indication: MULTIPLE SCLEROSIS
     Dosage: 800 UG 12 PILLS DAILY BUCCAL
     Route: 002
  2. FENTORA [Suspect]
     Indication: MUSCLE SPASMS
     Dosage: 800 UG 12 PILLS DAILY BUCCAL
     Route: 002
  3. FENTORA [Suspect]
     Indication: NEURALGIA
     Dosage: 800 UG 12 PILLS DAILY BUCCAL
     Route: 002
  4. FENTORA [Suspect]
     Indication: MULTIPLE SCLEROSIS
     Dosage: 800 UG QID BUCCAL
     Route: 002
  5. FENTORA [Suspect]
     Indication: MUSCLE SPASMS
     Dosage: 800 UG QID BUCCAL
     Route: 002
  6. FENTORA [Suspect]
     Indication: NEURALGIA
     Dosage: 800 UG QID BUCCAL
     Route: 002
  7. OXYCONTIN [Concomitant]
  8. MORPHINE [Concomitant]

REACTIONS (2)
  - DRUG WITHDRAWAL SYNDROME [None]
  - INAPPROPRIATE SCHEDULE OF DRUG ADMINISTRATION [None]
